FAERS Safety Report 8525393-5 (Version None)
Quarter: 2012Q3

REPORT INFORMATION
  Report Type: 
  Country: None (occurrence: None)
  Receive Date: 20120710
  Receipt Date: 20120625
  Transmission Date: 20120928
  Serious: Yes (Hospitalization)
  Sender: FDA-Public Use
  Company Number: 2012AP001386

PATIENT
  Age: 25 Year
  Sex: Female

DRUGS (3)
  1. GLUCOCORTICOIDS (GLUCOCORTICOIDS) [Concomitant]
  2. BENZODIAZEPINE DERIVATIVES (BENZODIAZEPINE DERIVATIVES) [Concomitant]
  3. OLANZAPINE [Suspect]
     Indication: PSYCHIATRIC SYMPTOM
     Dosage: 10 MG;UNKNOWN, 20 MG;UNKNOWN

REACTIONS (4)
  - PYREXIA [None]
  - WHITE BLOOD CELL COUNT DECREASED [None]
  - BUTTERFLY RASH [None]
  - AGRANULOCYTOSIS [None]
